FAERS Safety Report 6425804-5 (Version None)
Quarter: 2009Q4

REPORT INFORMATION
  Report Type: 
  Country: None (occurrence: None)
  Receive Date: 20091103
  Receipt Date: 20090715
  Transmission Date: 20100525
  Serious: No
  Sender: FDA-Public Use
  Company Number: US-ABBOTT-09P-163-0586276-00

PATIENT
  Sex: Female

DRUGS (8)
  1. BIAXIN [Suspect]
     Indication: SINUSITIS
     Route: 048
     Dates: start: 20090501
  2. BIAXIN [Suspect]
  3. AVELOX [Suspect]
     Indication: SINUSITIS
     Dates: start: 20090501
  4. PINDOLOL [Concomitant]
     Indication: HYPERTENSION
  5. K-FLEX [Concomitant]
     Indication: DRUG USE FOR UNKNOWN INDICATION
  6. SINGULAIR [Concomitant]
     Indication: SEASONAL ALLERGY
  7. ALLEGRA [Concomitant]
     Indication: SEASONAL ALLERGY
  8. MUCINEX [Concomitant]
     Indication: SEASONAL ALLERGY
     Route: 048

REACTIONS (4)
  - BURNING SENSATION [None]
  - HYPOAESTHESIA [None]
  - PAIN IN EXTREMITY [None]
  - SINUS POLYP [None]
